FAERS Safety Report 15221577 (Version 2)
Quarter: 2018Q4

REPORT INFORMATION
  Report Type: Spontaneous
  Country: JP (occurrence: JP)
  Receive Date: 20180731
  Receipt Date: 20181017
  Transmission Date: 20190204
  Serious: Yes (Other)
  Sender: FDA-Public Use
  Company Number: JP-ELI_LILLY_AND_COMPANY-JP201807011801

PATIENT
  Age: 58 Year
  Sex: Male

DRUGS (2)
  1. CYRAMZA [Suspect]
     Active Substance: RAMUCIRUMAB
     Indication: LUNG NEOPLASM MALIGNANT
     Dosage: 10 MG/KG, UNK
     Route: 041
     Dates: start: 20180202, end: 20180622
  2. DOCETAXEL. [Concomitant]
     Active Substance: DOCETAXEL
     Indication: LUNG NEOPLASM MALIGNANT
     Dosage: 60 MG/M2, UNK
     Route: 041
     Dates: start: 20180202, end: 20180622

REACTIONS (2)
  - Tumour haemorrhage [Recovered/Resolved]
  - Malignant neoplasm progression [Unknown]

NARRATIVE: CASE EVENT DATE: 20180711
